FAERS Safety Report 20255286 (Version 1)
Quarter: 2021Q4

REPORT INFORMATION
  Report Type: Spontaneous
  Country: US (occurrence: None)
  Receive Date: 20211230
  Receipt Date: 20211230
  Transmission Date: 20220303
  Serious: Yes (Other)
  Sender: FDA-Public Use
  Company Number: 2021A899746

PATIENT
  Age: 25668 Day
  Sex: Female
  Weight: 37.6 kg

DRUGS (1)
  1. PULMICORT FLEXHALER [Suspect]
     Active Substance: BUDESONIDE
     Indication: Asthma
     Route: 055
     Dates: start: 2018

REACTIONS (5)
  - Retinal detachment [Unknown]
  - Malaise [Unknown]
  - Wrong technique in device usage process [Unknown]
  - Intentional device use issue [Unknown]
  - Incorrect dose administered by device [Unknown]

NARRATIVE: CASE EVENT DATE: 20211217
